FAERS Safety Report 10509958 (Version 1)
Quarter: 2014Q4

REPORT INFORMATION
  Report Type: Spontaneous
  Country: US (occurrence: None)
  Receive Date: 20141008
  Receipt Date: 20141008
  Transmission Date: 20150528
  Serious: Yes (Death)
  Sender: FDA-Public Use
  Company Number: QSC-2014-0680

PATIENT
  Age: 76 Year
  Sex: Female

DRUGS (1)
  1. H.P. ACTHAR [Suspect]
     Active Substance: CORTICOTROPIN
     Indication: NEPHROTIC SYNDROME
     Dosage: 80UNITS
     Route: 058
     Dates: start: 201408

REACTIONS (1)
  - Sepsis [None]

NARRATIVE: CASE EVENT DATE: 20140923
